FAERS Safety Report 8110673-8 (Version None)
Quarter: 2012Q1

REPORT INFORMATION
  Report Type: 
  Country: None (occurrence: None)
  Receive Date: 20120203
  Receipt Date: 20120123
  Transmission Date: 20120608
  Serious: Yes (Other)
  Sender: FDA-Public Use
  Company Number: IN-PAR PHARMACEUTICAL, INC-2012SCPR004027

PATIENT

DRUGS (7)
  1. DIVALPROEX SODIUM [Concomitant]
     Indication: MANIA
  2. OLANZAPINE [Suspect]
     Indication: MANIA
     Dosage: 10 MG, HS
     Route: 065
  3. LORAZEPAM [Concomitant]
     Indication: MANIA
     Dosage: 2 MG, HS
     Route: 065
  4. LORAZEPAM [Concomitant]
     Dosage: 4 MG, HS
     Route: 065
  5. DIVALPROEX SODIUM [Concomitant]
     Indication: BIPOLAR DISORDER
     Dosage: 250 MG, HS
     Route: 065
  6. OLANZAPINE [Suspect]
     Indication: BIPOLAR DISORDER
     Dosage: 5 MG, HS
     Route: 065
  7. LORAZEPAM [Concomitant]
     Indication: BIPOLAR DISORDER
     Dosage: 1 UNK, UNK
     Route: 065

REACTIONS (3)
  - BLOOD UREA INCREASED [None]
  - BLOOD CREATININE INCREASED [None]
  - DELIRIUM [None]
